FAERS Safety Report 17097412 (Version 2)
Quarter: 2019Q4

REPORT INFORMATION
  Report Type: Spontaneous
  Country: DE (occurrence: DE)
  Receive Date: 20191202
  Receipt Date: 20191205
  Transmission Date: 20200122
  Serious: Yes (Hospitalization)
  Sender: FDA-Public Use
  Company Number: DE-MYLANLABS-2019M1115691

PATIENT
  Age: 76 Year
  Sex: Female

DRUGS (5)
  1. NALOXONE HYDROCHLORIDE W/TILIDINE HYDROCHLORI [Concomitant]
     Active Substance: NALOXONE HYDROCHLORIDE\TILIDINE HYDROCHLORIDE
     Dosage: 50|4 MG, 0-0-1-0
  2. METHOTREXATE. [Suspect]
     Active Substance: METHOTREXATE
     Indication: PRODUCT USED FOR UNKNOWN INDICATION
     Dosage: 12.5 MG, 1 X/WOCHE; FREITAGS
  3. RAMIPRIL. [Concomitant]
     Active Substance: RAMIPRIL
     Dosage: 5 MILLIGRAM 1-0-0-0
  4. HUMIRA [Suspect]
     Active Substance: ADALIMUMAB
     Indication: PRODUCT USED FOR UNKNOWN INDICATION
     Dosage: NK MG, NK
  5. FOLIC ACID. [Concomitant]
     Active Substance: FOLIC ACID
     Dosage: NK MG, NK

REACTIONS (4)
  - Cough [Unknown]
  - General physical health deterioration [Unknown]
  - Pyrexia [Unknown]
  - Fall [Unknown]
